FAERS Safety Report 6635655-4 (Version None)
Quarter: 2010Q1

REPORT INFORMATION
  Report Type: 
  Country: None (occurrence: None)
  Receive Date: 20100315
  Receipt Date: 20100304
  Transmission Date: 20100710
  Serious: Yes (Other)
  Sender: FDA-Public Use
  Company Number: US-AMGEN-QUU393674

PATIENT
  Sex: Male
  Weight: 75.4 kg

DRUGS (8)
  1. NPLATE [Suspect]
     Indication: IDIOPATHIC THROMBOCYTOPENIC PURPURA
     Dates: start: 20090708, end: 20091110
  2. CORTICOSTEROIDS [Concomitant]
     Dates: start: 20070301
  3. WINRHO [Concomitant]
     Dates: start: 20070301
  4. OXYCODONE [Concomitant]
  5. DURAGESIC-100 [Concomitant]
     Route: 062
  6. PREDNISONE TAB [Concomitant]
  7. CICLOPIROX [Concomitant]
  8. DEXAMETHASONE [Concomitant]
     Dates: start: 20091201

REACTIONS (21)
  - ABDOMINAL PAIN [None]
  - ABDOMINAL PAIN UPPER [None]
  - CONSTIPATION [None]
  - CONTUSION [None]
  - COUGH [None]
  - DRUG INEFFECTIVE [None]
  - DYSURIA [None]
  - EPISTAXIS [None]
  - EYE IRRITATION [None]
  - FATIGUE [None]
  - GENITAL DISCHARGE [None]
  - HAEMATOMA [None]
  - HEADACHE [None]
  - HYPERGAMMAGLOBULINAEMIA BENIGN MONOCLONAL [None]
  - LACRIMATION INCREASED [None]
  - MYALGIA [None]
  - NAUSEA [None]
  - OCULAR HYPERAEMIA [None]
  - POOR QUALITY SLEEP [None]
  - RESPIRATORY TRACT CONGESTION [None]
  - THERAPEUTIC RESPONSE DECREASED [None]
